FAERS Safety Report 4693638-8 (Version None)
Quarter: 2005Q2

REPORT INFORMATION
  Report Type: 
  Country: None (occurrence: None)
  Receive Date: 20050615
  Receipt Date: 20050603
  Transmission Date: 20051028
  Serious: Yes (Hospitalization, Other)
  Sender: FDA-Public Use
  Company Number: 2005085138

PATIENT
  Age: 85 Year
  Sex: Female
  Weight: 113.3993 kg

DRUGS (2)
  1. LIPITOR [Suspect]
     Indication: BLOOD CHOLESTEROL INCREASED
     Dosage: ORAL
     Route: 048
  2. TYLENOL [Concomitant]

REACTIONS (4)
  - DIABETES MELLITUS [None]
  - HYSTERECTOMY [None]
  - RENAL DISORDER [None]
  - WEIGHT DECREASED [None]
